FAERS Safety Report 25736865 (Version 2)
Quarter: 2025Q3

REPORT INFORMATION
  Report Type: Spontaneous
  Country: JP (occurrence: JP)
  Receive Date: 20250828
  Receipt Date: 20250923
  Transmission Date: 20251020
  Serious: Yes (Death)
  Sender: AMGEN
  Company Number: JP-AMGEN-JPNSP2025167081

PATIENT
  Age: 75 Year
  Sex: Female

DRUGS (7)
  1. PANITUMUMAB [Suspect]
     Active Substance: PANITUMUMAB
     Indication: Colorectal cancer
     Dosage: UNK, 2 TIMES/WK, 7 CYCLES
     Route: 065
  2. BEVACIZUMAB [Concomitant]
     Active Substance: BEVACIZUMAB
     Indication: Colorectal cancer
     Route: 040
  3. TS-1 [Concomitant]
     Active Substance: GIMERACIL\OTERACIL POTASSIUM\TEGAFUR
  4. OXALIPLATIN [Concomitant]
     Active Substance: OXALIPLATIN
  5. IRINOTECAN HYDROCHLORIDE [Concomitant]
     Active Substance: IRINOTECAN HYDROCHLORIDE
  6. REGORAFENIB [Concomitant]
     Active Substance: REGORAFENIB
  7. TRIFLURIDINE [Concomitant]
     Active Substance: TRIFLURIDINE

REACTIONS (1)
  - Death [Fatal]
